FAERS Safety Report 7206607-0 (Version None)
Quarter: 2011Q1

REPORT INFORMATION
  Report Type: 
  Country: None (occurrence: None)
  Receive Date: 20110103
  Receipt Date: 20101229
  Transmission Date: 20110831
  Serious: Yes (Other)
  Sender: FDA-Public Use
  Company Number: US-JNJFOC-20101208965

PATIENT
  Sex: Female
  Weight: 57.61 kg

DRUGS (2)
  1. DURAGESIC-50 [Suspect]
     Dosage: NDC 50458-092-05
     Route: 062
  2. DURAGESIC-50 [Suspect]
     Indication: ILL-DEFINED DISORDER
     Dosage: NDC 50458-034-05
     Route: 062

REACTIONS (4)
  - FEELING HOT [None]
  - HOT FLUSH [None]
  - HYSTERECTOMY [None]
  - HYPERHIDROSIS [None]
